FAERS Safety Report 7475346-3 (Version None)
Quarter: 2011Q2

REPORT INFORMATION
  Report Type: 
  Country: None (occurrence: None)
  Receive Date: 20110512
  Receipt Date: 20110504
  Transmission Date: 20111010
  Serious: Yes (Hospitalization, Other)
  Sender: FDA-Public Use
  Company Number: PL-AMGEN-POLSP2011023499

PATIENT
  Age: 37 Year
  Sex: Male
  Weight: 99 kg

DRUGS (5)
  1. ENBREL [Suspect]
     Indication: RHEUMATOID ARTHRITIS
     Dosage: 50 MG, WEEKLY
     Dates: start: 20090224
  2. METYPRED                           /00049601/ [Concomitant]
     Dosage: UNK
     Route: 048
  3. PRAMOLAN [Concomitant]
     Dosage: UNK
     Route: 048
  4. OLFEN                              /00372302/ [Concomitant]
     Dosage: UNK
     Route: 048
  5. BISOCARD [Concomitant]
     Dosage: UNK
     Route: 048

REACTIONS (3)
  - LEUKOCYTOSIS [None]
  - HEPATIC STEATOSIS [None]
  - CHRONIC MYELOID LEUKAEMIA [None]
